FAERS Safety Report 7042176-6 (Version None)
Quarter: 2010Q4

REPORT INFORMATION
  Report Type: 
  Country: None (occurrence: None)
  Receive Date: 20101013
  Receipt Date: 20100721
  Transmission Date: 20110411
  Serious: No
  Sender: FDA-Public Use
  Company Number: US-ASTRAZENECA-2010SE24822

PATIENT
  Age: 61 Year
  Sex: Female
  Weight: 60.8 kg

DRUGS (5)
  1. SYMBICORT [Suspect]
     Indication: ASTHMA
     Dosage: DAILY DOSAGE 320/9
     Route: 055
     Dates: start: 20091118, end: 20100601
  2. CRESTOR [Concomitant]
  3. BENECAR [Concomitant]
     Indication: HYPERTENSION
  4. PROAIR HFA [Concomitant]
  5. ASPIRIN [Concomitant]
     Indication: PROPHYLAXIS

REACTIONS (2)
  - CAPILLARY FRAGILITY [None]
  - CONTUSION [None]
